FAERS Safety Report 5282966-3 (Version None)
Quarter: 2007Q1

REPORT INFORMATION
  Report Type: 
  Country: None (occurrence: None)
  Receive Date: 20070328
  Receipt Date: 20070328
  Transmission Date: 20070707
  Serious: Yes (Other)
  Sender: FDA-Public Use
  Company Number: None

PATIENT
  Age: 56 Year
  Sex: Male
  Weight: 112.5 kg

DRUGS (20)
  1. FLUVASTATIN [Suspect]
  2. BISACODYL (MAGIC BULLET) [Concomitant]
  3. FISH OIL [Concomitant]
  4. WATER FOR IRRIGATION, STERILE [Concomitant]
  5. CLONAZEPAM [Concomitant]
  6. MULTIVITAMIN THERAPEUTIC [Concomitant]
  7. CALCIUM / VITAMIN D [Concomitant]
  8. GLOVE VINYL [Concomitant]
  9. NITROFURANTOIN MACROCRYSTALLINE [Concomitant]
  10. SENNOSIDES [Concomitant]
  11. CITALOPRAM HYDROBROMIDE [Concomitant]
  12. METHENAMINE MANDELATE [Concomitant]
  13. METOPROLOL TARTRATE [Concomitant]
  14. EUCERIN LOTION [Concomitant]
  15. BACLOFEN [Concomitant]
  16. COUMADIN [Concomitant]
  17. AMOXICILLIN [Concomitant]
  18. GLYCERIN (ADULT) [Concomitant]
  19. CHLORHEXIDINE GLUCONATE [Concomitant]
  20. SODIUM FLUORIDE [Concomitant]

REACTIONS (1)
  - BLOOD CREATINE PHOSPHOKINASE INCREASED [None]
